FAERS Safety Report 9989402 (Version 1)
Quarter: 2014Q1

REPORT INFORMATION
  Report Type: Spontaneous
  Country: DE (occurrence: DE)
  Receive Date: 20140310
  Receipt Date: 20140310
  Transmission Date: 20141002
  Serious: Yes (Death)
  Sender: FDA-Public Use
  Company Number: DE-JNJFOC-20140303529

PATIENT
  Sex: 0

DRUGS (2)
  1. GOLIMUMAB [Suspect]
     Indication: RHEUMATOID ARTHRITIS
     Dosage: FOR 6 MONTHS
     Route: 058
  2. METHOTREXATE [Suspect]
     Indication: RHEUMATOID ARTHRITIS
     Route: 065

REACTIONS (1)
  - Death [Fatal]
